FAERS Safety Report 20918795 (Version 7)
Quarter: 2024Q1

REPORT INFORMATION
  Report Type: Report from Study
  Country: US (occurrence: US)
  Receive Date: 20220606
  Receipt Date: 20240115
  Transmission Date: 20240409
  Serious: No
  Sender: FDA-Public Use
  Company Number: US-NOVARTISTESTPH-NVSC2022US129021

PATIENT
  Sex: Male

DRUGS (3)
  1. ENTRESTO [Suspect]
     Active Substance: SACUBITRIL\VALSARTAN
     Indication: Product used for unknown indication
     Dosage: 1 DOSAGE FORM, BID (24/26 MG)
     Route: 065
     Dates: start: 20220416
  2. ENTRESTO [Suspect]
     Active Substance: SACUBITRIL\VALSARTAN
     Dosage: 1 DOSAGE FORM, QD (24/26 MG)
     Route: 065
  3. ENTRESTO [Suspect]
     Active Substance: SACUBITRIL\VALSARTAN
     Dosage: 24 MG, BID, (24/26 MG)
     Route: 048
     Dates: start: 20220803, end: 20230722

REACTIONS (4)
  - Weight decreased [Unknown]
  - Cough [Not Recovered/Not Resolved]
  - Hypotension [Recovering/Resolving]
  - Inappropriate schedule of product administration [Unknown]
